FAERS Safety Report 9687283 (Version 1)
Quarter: 2013Q4

REPORT INFORMATION
  Report Type: Report from Study
  Country: JP (occurrence: JP)
  Receive Date: 20131114
  Receipt Date: 20131114
  Transmission Date: 20140711
  Serious: Yes (Hospitalization)
  Sender: FDA-Public Use
  Company Number: JP-AMGEN-JPNCT2013079052

PATIENT
  Age: 79 Year
  Sex: Male
  Weight: 52 kg

DRUGS (29)
  1. DARBEPOETIN ALFA [Suspect]
     Indication: NEPHROGENIC ANAEMIA
     Dosage: 30 MUG, QD
     Route: 058
     Dates: start: 20110712
  2. DARBEPOETIN ALFA [Suspect]
     Dosage: 40 MUG, QD
     Route: 058
     Dates: start: 20110809, end: 20110809
  3. DARBEPOETIN ALFA [Suspect]
     Dosage: 40 MUG, QD
     Route: 058
     Dates: start: 20110913
  4. DARBEPOETIN ALFA [Suspect]
     Dosage: 60 MUG, QD
     Route: 058
     Dates: start: 20111011, end: 20111011
  5. DARBEPOETIN ALFA [Suspect]
     Dosage: 60 MUG, QD
     Route: 058
     Dates: start: 20111108, end: 20111108
  6. DARBEPOETIN ALFA [Suspect]
     Dosage: 60 MUG, QD
     Route: 058
     Dates: start: 20111213
  7. DARBEPOETIN ALFA [Suspect]
     Dosage: 60 MUG, Q4WK
     Route: 058
     Dates: start: 20120214, end: 20120703
  8. DARBEPOETIN ALFA [Suspect]
     Dosage: 60 MUG, Q4WK
     Route: 058
     Dates: start: 20121113, end: 20121211
  9. DARBEPOETIN ALFA [Suspect]
     Dosage: 30 MUG, QWK
     Route: 040
     Dates: start: 20130119, end: 20130214
  10. KREMEZIN [Concomitant]
     Route: 048
  11. EPADEL-S [Concomitant]
     Route: 048
  12. OMEPRAL                            /00661201/ [Concomitant]
     Route: 048
  13. VOGLIBOSE [Concomitant]
     Route: 048
  14. METHYCOBAL [Concomitant]
     Route: 048
  15. GASMOTIN [Concomitant]
     Route: 048
  16. ADALAT [Concomitant]
     Route: 048
  17. ATELEC [Concomitant]
     Route: 048
  18. BAYASPIRIN [Concomitant]
     Route: 048
  19. HARNAL [Concomitant]
     Route: 048
  20. CARDENALIN [Concomitant]
     Route: 048
  21. LASIX                              /00032601/ [Concomitant]
     Route: 048
  22. FRANDOL [Concomitant]
     Route: 062
  23. NORVASC [Concomitant]
     Route: 048
  24. URALYT                             /01779901/ [Concomitant]
     Route: 048
  25. ITOROL [Concomitant]
     Route: 048
  26. NATRIX [Concomitant]
     Route: 048
  27. LUPRAC [Concomitant]
     Route: 048
  28. PLAVIX [Concomitant]
     Dosage: UNK
     Route: 048
  29. MICARDIS [Concomitant]
     Dosage: UNK
     Route: 048

REACTIONS (3)
  - Blood pressure increased [Recovered/Resolved]
  - Cardiac failure acute [Recovered/Resolved]
  - Cardiac failure congestive [Recovered/Resolved]
